FAERS Safety Report 10079402 (Version 1)
Quarter: 2014Q2

REPORT INFORMATION
  Report Type: Spontaneous
  Country: US (occurrence: None)
  Receive Date: 20140414
  Receipt Date: 20140414
  Transmission Date: 20141212
  Serious: Yes (Life-Threatening, Disabling)
  Sender: FDA-Public Use
  Company Number: None

PATIENT
  Age: 50 Year
  Sex: Female
  Weight: 90.72 kg

DRUGS (12)
  1. GLIMEPIRIDE [Suspect]
     Indication: DIABETES MELLITUS
     Dosage: 1 PILL
     Route: 048
     Dates: start: 20140312, end: 20140409
  2. GLIMEPIRIDE [Suspect]
     Indication: BLOOD GLUCOSE ABNORMAL
     Dosage: 1 PILL
     Route: 048
     Dates: start: 20140312, end: 20140409
  3. CRESTOR [Concomitant]
  4. METFORMIN [Concomitant]
  5. TRAMADOL [Concomitant]
  6. LANTUS INSULIN [Concomitant]
  7. CEPHALEXIN [Concomitant]
  8. ASPIRIN [Concomitant]
  9. PEPTO BISMOL [Concomitant]
  10. ONE A DAY MULTI VITAMINS [Concomitant]
  11. FISH OIL [Concomitant]
  12. ST JOHNS WART [Concomitant]

REACTIONS (17)
  - Heart rate increased [None]
  - Chest discomfort [None]
  - Pain in extremity [None]
  - Agitation [None]
  - Chills [None]
  - Confusional state [None]
  - Urine output decreased [None]
  - Headache [None]
  - Irritability [None]
  - Myalgia [None]
  - Arthralgia [None]
  - Nausea [None]
  - Lethargy [None]
  - Fatigue [None]
  - Malaise [None]
  - Feeling abnormal [None]
  - Chest pain [None]
